FAERS Safety Report 6726423-3 (Version None)
Quarter: 2010Q2

REPORT INFORMATION
  Report Type: 
  Country: None (occurrence: None)
  Receive Date: 20100514
  Receipt Date: 20100503
  Transmission Date: 20101027
  Serious: Yes (Hospitalization)
  Sender: FDA-Public Use
  Company Number: US-ELI_LILLY_AND_COMPANY-US201004001095

PATIENT
  Sex: Male
  Weight: 90.3 kg

DRUGS (18)
  1. PEMETREXED [Suspect]
     Indication: NON-SMALL CELL LUNG CANCER STAGE III
     Dosage: 500 MG/M2, OTHER
     Route: 042
     Dates: start: 20100308, end: 20100419
  2. CISPLATIN [Suspect]
     Indication: NON-SMALL CELL LUNG CANCER STAGE III
     Dosage: 75 MG/M2, OTHER
     Route: 042
     Dates: start: 20100308, end: 20100419
  3. RADIATION [Suspect]
     Indication: NON-SMALL CELL LUNG CANCER STAGE III
     Dosage: UNK, OTHER
     Dates: start: 20100308, end: 20100420
  4. FOLIC ACID [Concomitant]
     Indication: PROPHYLAXIS
     Dates: start: 20100224
  5. VITAMIN B-12 [Concomitant]
     Indication: PROPHYLAXIS
     Dates: start: 20100224
  6. DEXAMETHASONE [Concomitant]
     Indication: PROPHYLAXIS
     Dates: start: 20100307
  7. HYDROCODONE [Concomitant]
     Indication: PAIN
     Dates: start: 20030101
  8. BACLOFEN [Concomitant]
     Indication: MUSCLE SPASMS
     Dosage: 10 MG, 4/D
     Dates: start: 20070101
  9. GABAPENTIN [Concomitant]
     Indication: NEUROPATHY PERIPHERAL
     Dosage: 900 MG, 3/D
     Dates: start: 20030101
  10. MELOXICAM [Concomitant]
     Indication: MUSCLE SPASMS
     Dosage: 15 MG, DAILY (1/D)
     Dates: start: 20070101
  11. TRAZODONE HCL [Concomitant]
     Indication: INSOMNIA
     Dosage: 100 MG, EACH EVENING
     Dates: start: 20030101
  12. CYMBALTA [Concomitant]
     Indication: NEUROPATHY PERIPHERAL
     Dosage: UNK, UNK
     Dates: start: 20040101
  13. METFORMIN HYDROCHLORIDE [Concomitant]
     Indication: DIABETES MELLITUS
     Dosage: UNK, UNK
     Dates: start: 20050101
  14. PANTOPRAZOLE [Concomitant]
     Indication: GASTROOESOPHAGEAL REFLUX DISEASE
     Dosage: 40 MG, DAILY (1/D)
     Dates: start: 20080101
  15. LANTUS [Concomitant]
     Indication: DIABETES MELLITUS
     Dosage: UNK, UNK
     Dates: start: 20100308
  16. LORTAB [Concomitant]
     Dates: start: 20030101
  17. INSULIN [Concomitant]
     Indication: DIABETES MELLITUS
     Dates: start: 20100201
  18. LOVASTATIN [Concomitant]
     Indication: BLOOD CHOLESTEROL INCREASED
     Dosage: 40 MG, DAILY (1/D)
     Dates: start: 20050101

REACTIONS (11)
  - BLOOD GLUCOSE INCREASED [None]
  - DEHYDRATION [None]
  - DYSPNOEA [None]
  - HAEMOGLOBIN DECREASED [None]
  - NAUSEA [None]
  - NEUTROPHIL PERCENTAGE INCREASED [None]
  - OESOPHAGITIS ULCERATIVE [None]
  - PLATELET COUNT DECREASED [None]
  - RADIATION OESOPHAGITIS [None]
  - VOMITING [None]
  - WHITE BLOOD CELL COUNT DECREASED [None]
